FAERS Safety Report 9453679 (Version 2)
Quarter: 2013Q3

REPORT INFORMATION
  Report Type: Spontaneous
  Country: US (occurrence: US)
  Receive Date: 20130812
  Receipt Date: 20130920
  Transmission Date: 20140515
  Serious: No
  Sender: FDA-Public Use
  Company Number: US-009507513-1308USA003930

PATIENT
  Sex: Female
  Weight: 84.81 kg

DRUGS (1)
  1. NEXPLANON [Suspect]
     Indication: CONTRACEPTION
     Dosage: UNK
     Route: 059
     Dates: start: 201106, end: 20130802

REACTIONS (2)
  - Pain in extremity [Recovering/Resolving]
  - Hypoaesthesia [Recovered/Resolved]
